FAERS Safety Report 7238383-X (Version None)
Quarter: 2011Q1

REPORT INFORMATION
  Report Type: 
  Country: None (occurrence: None)
  Receive Date: 20110121
  Receipt Date: 20110110
  Transmission Date: 20110831
  Serious: Yes (Other)
  Sender: FDA-Public Use
  Company Number: FR-CELGENEUS-056-21880-10110793

PATIENT
  Sex: Male
  Weight: 77 kg

DRUGS (7)
  1. DEXAMETHASONE [Suspect]
     Indication: MULTIPLE MYELOMA
     Route: 065
     Dates: start: 20090901, end: 20100301
  2. NEORECORMON ^ROCHE^ [Concomitant]
     Route: 058
     Dates: end: 20101101
  3. REVLIMID [Suspect]
     Indication: MULTIPLE MYELOMA
     Route: 048
     Dates: start: 20090901, end: 20101101
  4. REVLIMID [Suspect]
     Route: 048
  5. TRIATEC [Interacting]
     Indication: HYPERTENSION
     Route: 048
  6. REVLIMID [Suspect]
     Route: 048
  7. KARDEGIC [Concomitant]
     Route: 065
     Dates: start: 20090901

REACTIONS (1)
  - SQUAMOUS CELL CARCINOMA [None]
